FAERS Safety Report 9797698 (Version 3)
Quarter: 2014Q1

REPORT INFORMATION
  Report Type: Spontaneous
  Country: US (occurrence: US)
  Receive Date: 20140106
  Receipt Date: 20140319
  Transmission Date: 20141002
  Serious: Yes (Hospitalization)
  Sender: FDA-Public Use
  Company Number: US-PFIZER INC-2013374486

PATIENT
  Age: 49 Year
  Sex: Female
  Weight: 45.35 kg

DRUGS (1)
  1. VFEND [Suspect]
     Indication: ANTIFUNGAL TREATMENT
     Dosage: 2 MG, DAILY
     Route: 048
     Dates: start: 20130313

REACTIONS (2)
  - Renal failure [Unknown]
  - Liver function test abnormal [Unknown]
